FAERS Safety Report 24290512 (Version 2)
Quarter: 2024Q3

REPORT INFORMATION
  Report Type: Spontaneous
  Country: JP (occurrence: JP)
  Receive Date: 20240906
  Receipt Date: 20240927
  Transmission Date: 20241016
  Serious: Yes (Other)
  Sender: RANBAXY
  Company Number: JP-SUN PHARMACEUTICAL INDUSTRIES LTD-2024RR-465920

PATIENT
  Age: 67 Year
  Sex: Male

DRUGS (7)
  1. OXALIPLATIN [Suspect]
     Active Substance: OXALIPLATIN
     Indication: Chemotherapy
     Dosage: 80 MILLIGRAM/SQ. METER, EVERY 3 WEEKS
     Route: 065
  2. IRINOTECAN [Suspect]
     Active Substance: IRINOTECAN
     Indication: Chemotherapy
     Dosage: 140 MILLIGRAM/SQ. METER, EVERY 2 WEEKS
     Route: 065
  3. TAXOL [Suspect]
     Active Substance: PACLITAXEL
     Indication: Chemotherapy
     Dosage: 80 MILLIGRAM/SQ. METER, DAYS 1, 8 AND 15
     Route: 065
  4. DOCETAXEL [Suspect]
     Active Substance: DOCETAXEL
     Indication: Chemotherapy
     Dosage: 50 MILLIGRAM/SQ. METER, EVERY 3 WEEKS
     Route: 065
  5. TS-1 [Suspect]
     Active Substance: GIMERACIL\OTERACIL POTASSIUM\TEGAFUR
     Indication: Chemotherapy
     Dosage: 120 MG/BODY; DAYS 1-14 EVERY 3 WEEKS
     Route: 065
  6. RAMUCIRUMAB [Suspect]
     Active Substance: RAMUCIRUMAB
     Indication: Chemotherapy
     Dosage: 8 MILLIGRAM/KILOGRAM, DAYS 1 AND 15
     Route: 065
  7. CORTRIL [Suspect]
     Active Substance: HYDROCORTISONE
     Indication: Product used for unknown indication
     Route: 065

REACTIONS (2)
  - Disease recurrence [Recovering/Resolving]
  - Therapeutic product effect incomplete [Recovering/Resolving]
